FAERS Safety Report 9694145 (Version 2)
Quarter: 2013Q4

REPORT INFORMATION
  Report Type: Spontaneous
  Country: TR (occurrence: TR)
  Receive Date: 20131118
  Receipt Date: 20131212
  Transmission Date: 20140711
  Serious: Yes (Other)
  Sender: FDA-Public Use
  Company Number: TR-TEVA-444217ISR

PATIENT
  Age: 58 Year
  Sex: Female

DRUGS (2)
  1. ENBREL MYCLIC [Suspect]
     Route: 058
     Dates: start: 20130523
  2. EMTHEXATE [Concomitant]

REACTIONS (12)
  - Nasal polyps [Unknown]
  - Dyspnoea [Unknown]
  - Tachycardia [Unknown]
  - Back pain [Unknown]
  - Pain [Unknown]
  - Contusion [Unknown]
  - Fear [Unknown]
  - Agitation [Unknown]
  - Psoriasis [Unknown]
  - Contusion [Unknown]
  - Injection site pain [Unknown]
  - Injection site haemorrhage [Unknown]
